FAERS Safety Report 9604484 (Version 9)
Quarter: 2021Q1

REPORT INFORMATION
  Report Type: Spontaneous
  Country: US (occurrence: US)
  Receive Date: 20131008
  Receipt Date: 20210205
  Transmission Date: 20210420
  Serious: Yes (Other)
  Sender: FDA-Public Use
  Company Number: US-PFIZER INC-2013286288

PATIENT
  Age: 51 Year
  Sex: Female
  Weight: 62 kg

DRUGS (14)
  1. LYRICA [Suspect]
     Active Substance: PREGABALIN
     Dosage: 25 MG, 3X/DAY
     Route: 048
     Dates: start: 2016, end: 20161001
  2. LYRICA [Suspect]
     Active Substance: PREGABALIN
     Dosage: 225 MG, 2X/DAY
     Route: 048
  3. CYMBALTA [Concomitant]
     Active Substance: DULOXETINE HYDROCHLORIDE
     Indication: DEPRESSION
     Dosage: 60 MG, 1X/DAY
     Dates: start: 2000
  4. LYRICA [Suspect]
     Active Substance: PREGABALIN
     Indication: SPINAL CORD DISORDER
     Dosage: 25 MG, 3X/DAY
     Route: 048
     Dates: start: 20160620, end: 20160918
  5. BACLOFEN. [Concomitant]
     Active Substance: BACLOFEN
     Dosage: 10 MG, 2X/DAY
     Route: 048
  6. TRAZODONE [Concomitant]
     Active Substance: TRAZODONE HYDROCHLORIDE
     Dosage: 50 MG, 1X/DAY (QHS)
     Route: 048
     Dates: start: 20161005
  7. LYRICA [Suspect]
     Active Substance: PREGABALIN
     Dosage: 225 MG, 2X/DAY
     Route: 048
     Dates: start: 201609, end: 2016
  8. DULOXETINE DR [Concomitant]
     Active Substance: DULOXETINE
     Dosage: UNK
  9. LYRICA [Suspect]
     Active Substance: PREGABALIN
     Indication: SPINAL STROKE
     Dosage: 200 MG, 3X/DAY
     Route: 048
     Dates: start: 20160308, end: 20160606
  10. LYRICA [Suspect]
     Active Substance: PREGABALIN
     Indication: NEURALGIA
     Dosage: 225 MG, 2X/DAY
     Route: 048
     Dates: start: 2007
  11. LYRICA [Suspect]
     Active Substance: PREGABALIN
     Dosage: 225 MG, 2X/DAY
     Route: 048
     Dates: start: 20161208
  12. LYRICA [Suspect]
     Active Substance: PREGABALIN
     Indication: BROWN-SEQUARD SYNDROME
     Dosage: 200 MG, 3X/DAY
     Route: 048
  13. ASPIRIN 81 [Concomitant]
     Active Substance: ASPIRIN
     Dosage: 81 MG, 1X/DAY (QDAY)
     Route: 048
  14. MACRODANTIN [Concomitant]
     Active Substance: NITROFURANTOIN
     Dosage: 100 MG, 2X/DAY
     Route: 048
     Dates: start: 20160921, end: 20160928

REACTIONS (6)
  - Non-Hodgkin^s lymphoma [Unknown]
  - Neuropathy peripheral [Unknown]
  - Fall [Unknown]
  - Hip fracture [Not Recovered/Not Resolved]
  - Sleep disorder [Unknown]
  - Panic attack [Unknown]

NARRATIVE: CASE EVENT DATE: 2011
